FAERS Safety Report 22186533 (Version 1)
Quarter: 2023Q2

REPORT INFORMATION
  Report Type: Spontaneous
  Country: None (occurrence: US)
  Receive Date: 20230407
  Receipt Date: 20230407
  Transmission Date: 20230722
  Serious: Yes (Hospitalization)
  Sender: FDA-Public Use
  Company Number: US-ECI Pharmaceuticals LLC-2140039

PATIENT
  Age: 71 Year
  Sex: Male
  Weight: 98.182 kg

DRUGS (3)
  1. METHIMAZOLE [Suspect]
     Active Substance: METHIMAZOLE
     Indication: Hyperthyroidism
     Route: 048
     Dates: start: 20180501, end: 20180901
  2. ELIQUIS [Concomitant]
     Active Substance: APIXABAN
  3. PRAVASTATIN [Concomitant]
     Active Substance: PRAVASTATIN

REACTIONS (6)
  - Paraesthesia [None]
  - Dizziness [None]
  - Confusional state [None]
  - Amnesia [None]
  - Dysarthria [None]
  - Product substitution issue [None]
